FAERS Safety Report 16045913 (Version 1)
Quarter: 2019Q1

REPORT INFORMATION
  Report Type: Spontaneous
  Country: US (occurrence: US)
  Receive Date: 20190206
  Receipt Date: 20190206
  Transmission Date: 20190418
  Serious: Yes (Hospitalization)
  Sender: FDA-Public Use
  Company Number: None

PATIENT
  Age: 66 Year
  Sex: Male
  Weight: 114 kg

DRUGS (2)
  1. DICLOFENAC [Suspect]
     Active Substance: DICLOFENAC
     Indication: PAIN
     Route: 048
     Dates: start: 20180301, end: 20181106
  2. IBUPROFEN. [Suspect]
     Active Substance: IBUPROFEN
     Indication: PAIN
     Route: 048
     Dates: start: 20181023, end: 20181106

REACTIONS (2)
  - Gastric ulcer haemorrhage [None]
  - Cellulitis [None]

NARRATIVE: CASE EVENT DATE: 20181106
